FAERS Safety Report 10699852 (Version 1)
Quarter: 2014Q4

REPORT INFORMATION
  Report Type: Spontaneous
  Country: US (occurrence: US)
  Receive Date: 20141001
  Receipt Date: 20141001
  Transmission Date: 20150529
  Serious: Yes (Death)
  Sender: FDA-Public Use
  Company Number: US-APOTEX-2014AP005052

PATIENT
  Age: 2 Year
  Sex: Male

DRUGS (1)
  1. FENTANYL. [Suspect]
     Active Substance: FENTANYL
     Indication: ACCIDENTAL OVERDOSE
     Route: 062

REACTIONS (2)
  - Accidental overdose [Fatal]
  - Loss of consciousness [Fatal]
